FAERS Safety Report 13850044 (Version 1)
Quarter: 2017Q3

REPORT INFORMATION
  Report Type: Spontaneous
  Country: US (occurrence: US)
  Receive Date: 20170809
  Receipt Date: 20170809
  Transmission Date: 20171127
  Serious: Yes (Other)
  Sender: FDA-Public Use
  Company Number: US-LUPIN (EUROPE) LIMITED-E2B_00006318

PATIENT
  Sex: Male
  Weight: 62.6 kg

DRUGS (2)
  1. LEVETIRACETAM EXTENDED RELEASE TABLET USP, 500 MG [Suspect]
     Active Substance: LEVETIRACETAM
     Dosage: INCREASED DOSE
     Route: 048
  2. LEVETIRACETAM EXTENDED RELEASE TABLET USP, 500 MG [Suspect]
     Active Substance: LEVETIRACETAM
     Indication: SEIZURE
     Dosage: 3 DF,QD,
     Route: 048
     Dates: start: 201603

REACTIONS (2)
  - Seizure [Not Recovered/Not Resolved]
  - Drug ineffective [Unknown]
